FAERS Safety Report 9187172 (Version 2)
Quarter: 2013Q2

REPORT INFORMATION
  Report Type: Spontaneous
  Country: BR (occurrence: BR)
  Receive Date: 20130322
  Receipt Date: 20130412
  Transmission Date: 20140414
  Serious: Yes (Other)
  Sender: FDA-Public Use
  Company Number: BR-AMGEN-BRACT2011011777

PATIENT
  Age: 66 Year
  Sex: Female
  Weight: 65 kg

DRUGS (20)
  1. ENBREL [Suspect]
     Indication: RHEUMATOID ARTHRITIS
     Dosage: 25MG 2X/WEEK
     Route: 058
     Dates: start: 201010
  2. ENBREL [Suspect]
     Dosage: UNK
  3. ENBREL [Suspect]
     Dosage: UNK
  4. ENBREL [Suspect]
     Dosage: 50 MG, QWK
     Route: 058
     Dates: start: 201110
  5. METHOTREXATE [Concomitant]
     Dosage: 6 MG, 2X/WEEK
     Dates: start: 2001
  6. CORTISONE [Concomitant]
     Indication: PAIN
     Dosage: 5 MG, 2X/DAY, (WHEN FEELING PAIN)
  7. CALCIUM 600 PLUS VITAMIN D [Concomitant]
     Dosage: 1 DF, 1X/DAY
     Dates: start: 2005
  8. CALCIUM [Concomitant]
     Dosage: 35 MG, WEEKLY
     Dates: start: 2005
  9. CALCIUM [Concomitant]
     Dosage: 35 MG, WEEKLY
  10. OMEPRAZOLE [Concomitant]
     Dosage: 20 MG, 1X/DAY
     Dates: start: 2007
  11. TYLENOL /00020001/ [Concomitant]
     Indication: PAIN
     Dosage: 2 CAPSULES, 3X/DAY, WHEN FEELING PAIN
     Dates: start: 2010
  12. LOSARTAN [Concomitant]
     Dosage: 50 MG, 1X/DAY
     Dates: start: 2001
  13. PREDNISONE [Concomitant]
     Dosage: 5 MG, UNK
     Dates: start: 2001
  14. RISEDRONATE SODIUM [Concomitant]
     Dosage: 35 MG, WEEKLY
     Dates: start: 2007
  15. IRON [Concomitant]
     Dosage: 27 MG, UNK
  16. CENTRUM                            /00554501/ [Concomitant]
     Dosage: UNK
     Dates: start: 201101
  17. OMEGA 3                            /01334101/ [Concomitant]
     Dosage: UNK
     Dates: start: 2010
  18. LEVOID [Concomitant]
     Indication: HORMONE REPLACEMENT THERAPY
     Dosage: 75 UNK
  19. ALPRAZOLAM [Concomitant]
     Dosage: UNK
  20. RECONTER [Concomitant]
     Dosage: UNK

REACTIONS (9)
  - Decreased appetite [Not Recovered/Not Resolved]
  - Headache [Not Recovered/Not Resolved]
  - Weight decreased [Not Recovered/Not Resolved]
  - Injection site mass [Unknown]
  - Rheumatoid arthritis [Not Recovered/Not Resolved]
  - Pain in extremity [Not Recovered/Not Resolved]
  - Arthralgia [Not Recovered/Not Resolved]
  - Injection site warmth [Unknown]
  - Injection site erythema [Unknown]
